FAERS Safety Report 21930073 (Version 1)
Quarter: 2023Q1

REPORT INFORMATION
  Report Type: Spontaneous
  Country: NL (occurrence: NL)
  Receive Date: 20230131
  Receipt Date: 20230131
  Transmission Date: 20230418
  Serious: Yes (Other)
  Sender: FDA-Public Use
  Company Number: NL-PLP-2023000004

PATIENT
  Age: 54 Year
  Sex: Female

DRUGS (2)
  1. LORAZEPAM [Suspect]
     Active Substance: LORAZEPAM
     Indication: Anxiety
     Dosage: STARTED WITH 2 TIMES A TABLET OF 2,5 MG AND NOW 2 TIMES HALF A TABLET OF 2,5 MG
     Route: 065
     Dates: start: 20221228
  2. ALPRAZOLAM [Suspect]
     Active Substance: ALPRAZOLAM
     Indication: Product used for unknown indication
     Dosage: UNK
     Route: 065
     Dates: start: 2003

REACTIONS (16)
  - Seizure [Unknown]
  - Drug dependence [Unknown]
  - Drug withdrawal syndrome [Unknown]
  - Migraine [Unknown]
  - Dizziness [Unknown]
  - Choking sensation [Unknown]
  - Malaise [Unknown]
  - Muscular weakness [Unknown]
  - Insomnia [Unknown]
  - Diplopia [Unknown]
  - Decreased appetite [Unknown]
  - Nausea [Unknown]
  - Hyperhidrosis [Unknown]
  - Anxiety disorder [Unknown]
  - Tremor [Unknown]
  - Product substitution [Unknown]
